FAERS Safety Report 9799769 (Version 3)
Quarter: 2015Q3

REPORT INFORMATION
  Report Type: Spontaneous
  Country: US (occurrence: US)
  Receive Date: 20140106
  Receipt Date: 20150806
  Transmission Date: 20151125
  Serious: No
  Sender: FDA-Public Use
  Company Number: US-GILEAD-2010-0031642

PATIENT
  Age: 76 Year
  Sex: Female
  Weight: 57.15 kg

DRUGS (18)
  1. LETAIRIS [Suspect]
     Active Substance: AMBRISENTAN
     Indication: PULMONARY ARTERIAL HYPERTENSION
     Route: 048
     Dates: start: 20100415
  2. CHOLESTYRAMINE. [Concomitant]
     Active Substance: CHOLESTYRAMINE
  3. PREDNISONE. [Concomitant]
     Active Substance: PREDNISONE
  4. ESTRADERM PATCH [Concomitant]
  5. VIAMIN B COMPLEX/C [Concomitant]
  6. QUESTRAN POWDER [Concomitant]
  7. CALTRATE [Concomitant]
     Active Substance: CALCIUM CARBONATE
  8. BENICAR [Concomitant]
     Active Substance: OLMESARTAN MEDOXOMIL
  9. NEXIUM [Concomitant]
     Active Substance: ESOMEPRAZOLE MAGNESIUM
  10. PARAGORIC LIQUID [Concomitant]
  11. XALATAN [Concomitant]
     Active Substance: LATANOPROST
  12. PRAVACHOL [Concomitant]
     Active Substance: PRAVASTATIN SODIUM
  13. IMODIUM [Concomitant]
     Active Substance: LOPERAMIDE HYDROCHLORIDE
  14. VITAMIN D [Concomitant]
     Active Substance: CHOLECALCIFEROL
  15. NORVASC [Concomitant]
     Active Substance: AMLODIPINE BESYLATE
  16. SYNTHROID [Concomitant]
     Active Substance: LEVOTHYROXINE SODIUM
  17. ULTRAM [Concomitant]
     Active Substance: TRAMADOL HYDROCHLORIDE
  18. FUROSEMIDE. [Concomitant]
     Active Substance: FUROSEMIDE

REACTIONS (1)
  - Peripheral swelling [Unknown]
